FAERS Safety Report 4509953-4 (Version None)
Quarter: 2004Q4

REPORT INFORMATION
  Report Type: 
  Country: None (occurrence: None)
  Receive Date: 20041119
  Receipt Date: 20041101
  Transmission Date: 20050328
  Serious: Yes (Hospitalization)
  Sender: FDA-Public Use
  Company Number: JP_040904591

PATIENT
  Age: 52 Year
  Sex: Female
  Weight: 48 kg

DRUGS (6)
  1. ZYPREXA [Suspect]
     Indication: DEPRESSION
     Dosage: 10 MG DAY
     Dates: start: 20040730, end: 20040825
  2. PAXIL [Concomitant]
  3. DOGMATYL (SULPIRIDE) [Concomitant]
  4. LEXOTAN (BROMAZEPAM) [Concomitant]
  5. LEVOTOMIN (LEVOMEPROMAZINE MALEATE) [Concomitant]
  6. RHYTHMY (RILMAZAFONE) [Concomitant]

REACTIONS (5)
  - ALANINE AMINOTRANSFERASE INCREASED [None]
  - ASPARTATE AMINOTRANSFERASE INCREASED [None]
  - BLOOD ALKALINE PHOSPHATASE INCREASED [None]
  - GAMMA-GLUTAMYLTRANSFERASE INCREASED [None]
  - HEPATIC FUNCTION ABNORMAL [None]
